FAERS Safety Report 7102159-4 (Version None)
Quarter: 2010Q4

REPORT INFORMATION
  Report Type: 
  Country: None (occurrence: None)
  Receive Date: 20101115
  Receipt Date: 20101104
  Transmission Date: 20110411
  Serious: Yes (Other)
  Sender: FDA-Public Use
  Company Number: CH-ROCHE-738855

PATIENT
  Age: 77 Year
  Sex: Female

DRUGS (4)
  1. BEVACIZUMAB [Suspect]
     Indication: COLORECTAL CANCER
     Route: 042
     Dates: start: 20100823, end: 20101018
  2. ELOXATIN [Concomitant]
     Indication: COLORECTAL CANCER
     Dates: start: 20100823, end: 20101018
  3. FLUOROURACIL [Concomitant]
     Indication: COLORECTAL CANCER
     Dates: start: 20100823, end: 20101018
  4. LEUCOVORIN CALCIUM [Concomitant]
     Indication: COLORECTAL CANCER
     Dates: start: 20100823, end: 20101018

REACTIONS (2)
  - COLORECTAL CANCER [None]
  - MALIGNANT NEOPLASM PROGRESSION [None]
